FAERS Safety Report 9455133 (Version 2)
Quarter: 2013Q4

REPORT INFORMATION
  Report Type: Spontaneous
  Country: AR (occurrence: AR)
  Receive Date: 20130813
  Receipt Date: 20131128
  Transmission Date: 20140711
  Serious: Yes (Other)
  Sender: FDA-Public Use
  Company Number: AR-AMGEN-ARGSP2013056371

PATIENT
  Age: 66 Year
  Sex: Female

DRUGS (3)
  1. ENBREL [Suspect]
     Indication: PSORIATIC ARTHROPATHY
     Dosage: 50 MG, WEEKLY
     Route: 065
     Dates: start: 20051115, end: 201306
  2. ARTRAIT                            /00113801/ [Concomitant]
     Dosage: 15 MG, UNK
  3. LEVOTHYROXINE [Concomitant]
     Dosage: 100 MG, 1X/DAY
     Dates: start: 2002

REACTIONS (3)
  - Psoriatic arthropathy [Not Recovered/Not Resolved]
  - Bone disorder [Not Recovered/Not Resolved]
  - Hyperkeratosis [Unknown]
